FAERS Safety Report 7747585-5 (Version None)
Quarter: 2011Q3

REPORT INFORMATION
  Report Type: 
  Country: None (occurrence: None)
  Receive Date: 20110913
  Receipt Date: 20110901
  Transmission Date: 20111222
  Serious: Yes (Disabling, Other)
  Sender: FDA-Public Use
  Company Number: JP-ELI_LILLY_AND_COMPANY-JP201107005888

PATIENT
  Sex: Male
  Weight: 55 kg

DRUGS (8)
  1. ETODOLAC [Concomitant]
     Indication: ANALGESIC THERAPY
     Dosage: 400 MG, UNK
     Route: 048
     Dates: start: 20091128, end: 20100423
  2. GEMZAR [Suspect]
     Dosage: 600 MG, OTHER
     Route: 042
     Dates: start: 20100319, end: 20101008
  3. GEMZAR [Suspect]
     Indication: INTRADUCTAL PAPILLARY MUCINOUS NEOPLASM
     Dosage: 1300 MG, OTHER
     Route: 042
     Dates: start: 20091028, end: 20091211
  4. GEMZAR [Suspect]
     Dosage: 800 MG, OTHER
     Route: 042
     Dates: start: 20100219, end: 20100305
  5. RABEPRAZOLE SODIUM [Concomitant]
     Indication: PROPHYLAXIS AGAINST GASTROINTESTINAL ULCER
     Dosage: 10 MG, UNK
     Route: 048
     Dates: start: 20091001, end: 20100423
  6. TS 1 [Concomitant]
     Indication: INTRADUCTAL PAPILLARY MUCINOUS NEOPLASM
     Dosage: 120 MG, OTHER
     Route: 048
     Dates: start: 20091028, end: 20100115
  7. TS 1 [Concomitant]
     Dosage: 100 MG, OTHER
     Route: 048
     Dates: start: 20100122, end: 20100226
  8. GEMZAR [Suspect]
     Dosage: 1000 MG, OTHER
     Route: 042
     Dates: start: 20091218, end: 20100205

REACTIONS (4)
  - LYMPHADENOPATHY [None]
  - MALAISE [None]
  - THROMBOTIC MICROANGIOPATHY [None]
  - NEUTROPHIL COUNT DECREASED [None]
